FAERS Safety Report 5536683-2 (Version None)
Quarter: 2007Q4

REPORT INFORMATION
  Report Type: 
  Country: None (occurrence: None)
  Receive Date: 20071204
  Receipt Date: 20071119
  Transmission Date: 20080405
  Serious: Yes (Hospitalization)
  Sender: FDA-Public Use
  Company Number: S07-FRA-06114-01

PATIENT
  Age: 82 Year
  Sex: Male

DRUGS (12)
  1. MEMANTINE HCL [Suspect]
     Indication: DEMENTIA ALZHEIMER'S TYPE
     Dosage: 10 MG BID PO
     Route: 048
     Dates: end: 20061121
  2. MEMANTINE HCL [Suspect]
     Indication: DEMENTIA ALZHEIMER'S TYPE
     Dosage: 10 MG BID PO
     Route: 048
     Dates: end: 20070730
  3. MEMANTINE HCL [Suspect]
     Indication: DEMENTIA ALZHEIMER'S TYPE
     Dosage: 10 MG BID PO
     Route: 048
     Dates: start: 20070805
  4. TEGRETOL-XR [Suspect]
     Indication: PARTIAL SEIZURES
     Dosage: 200 MG BID PO
     Route: 048
  5. IRBESARTAN [Suspect]
     Dates: end: 20061123
  6. IRBESARTAN + HYDROCHLOROTHIAZIDE [Suspect]
     Dates: start: 20061124, end: 20070719
  7. MEDIATENSYL(URAPIDIL) [Suspect]
     Dates: end: 20070731
  8. ESIDRIX [Suspect]
     Dates: start: 20070719, end: 20070805
  9. FUROSEMIDE [Concomitant]
  10. LERCANIDIPINE [Concomitant]
  11. TAREG(VALSARTAN) [Concomitant]
  12. SINGULAIR [Concomitant]

REACTIONS (6)
  - ATRIOVENTRICULAR BLOCK COMPLETE [None]
  - ATRIOVENTRICULAR BLOCK FIRST DEGREE [None]
  - ATRIOVENTRICULAR BLOCK SECOND DEGREE [None]
  - CEREBROVASCULAR ACCIDENT [None]
  - ISCHAEMIC STROKE [None]
  - SINUS BRADYCARDIA [None]
